FAERS Safety Report 11726784 (Version 3)
Quarter: 2015Q4

REPORT INFORMATION
  Report Type: Spontaneous
  Country: JP (occurrence: JP)
  Receive Date: 20151112
  Receipt Date: 20151229
  Transmission Date: 20160304
  Serious: Yes (Hospitalization)
  Sender: FDA-Public Use
  Company Number: PHJP2015JP019627

PATIENT
  Age: 62 Year
  Sex: Male
  Weight: 62 kg

DRUGS (10)
  1. CILOSTAZOL. [Concomitant]
     Active Substance: CILOSTAZOL
     Indication: AORTIC VALVE REPLACEMENT
     Dosage: 100 MG, BID
     Route: 048
     Dates: start: 20080205, end: 20151105
  2. NEUROTROPIN [Concomitant]
     Active Substance: NEUROTROPIN
     Indication: BACK PAIN
     Dosage: 2 DF, BID
     Route: 048
     Dates: start: 20151009, end: 20151022
  3. ZOPICLONE [Concomitant]
     Active Substance: ZOPICLONE
     Indication: INSOMNIA
     Dosage: 7.5 MG, QD
     Route: 048
     Dates: start: 20130308, end: 20151105
  4. CANDESARTAN [Concomitant]
     Active Substance: CANDESARTAN
     Indication: HYPERTENSION
     Dosage: 2 MG, QD
     Route: 048
     Dates: start: 20130118, end: 20151105
  5. MOSAPRIDE [Concomitant]
     Active Substance: MOSAPRIDE
     Indication: GASTRECTOMY
     Dosage: 5 MG, TID
     Route: 048
     Dates: start: 201210, end: 20151105
  6. WARFARIN [Concomitant]
     Active Substance: WARFARIN
     Indication: AORTIC VALVE REPLACEMENT
     Dosage: 3.5 MG, QD
     Route: 048
     Dates: start: 20080205
  7. TEGRETOL [Suspect]
     Active Substance: CARBAMAZEPINE
     Indication: TEMPORAL LOBE EPILEPSY
     Dosage: 200 MG, BID
     Route: 048
     Dates: start: 20151010, end: 20151030
  8. CAMOSTAT [Concomitant]
     Active Substance: CAMOSTAT
     Indication: GASTRECTOMY
     Dosage: 100 MG, BID
     Route: 048
     Dates: start: 201210, end: 20151105
  9. HALFDIGOXIN [Concomitant]
     Active Substance: DIGOXIN
     Indication: ATRIAL FIBRILLATION
     Dosage: 0.125 MG, QD
     Route: 048
     Dates: start: 20080205, end: 20151105
  10. SENNOSIDE [Concomitant]
     Active Substance: SENNOSIDES
     Indication: CONSTIPATION
     Dosage: 12 MG, QD
     Route: 048
     Dates: start: 20151002, end: 20151105

REACTIONS (12)
  - Parotid gland enlargement [Recovering/Resolving]
  - Pruritus generalised [Unknown]
  - Laryngeal oedema [Recovering/Resolving]
  - Stomatitis [Unknown]
  - Blood pressure increased [Recovered/Resolved]
  - Eye pruritus [Unknown]
  - Stevens-Johnson syndrome [Recovered/Resolved]
  - Eosinophilic pneumonia [Recovered/Resolved]
  - Eczema [Recovering/Resolving]
  - Rash [Recovering/Resolving]
  - Urticaria [Unknown]
  - Dysuria [Recovering/Resolving]

NARRATIVE: CASE EVENT DATE: 20151021
